FAERS Safety Report 5155521-3 (Version None)
Quarter: 2006Q4

REPORT INFORMATION
  Report Type: 
  Country: None (occurrence: None)
  Receive Date: 20061114
  Receipt Date: 20061101
  Transmission Date: 20070319
  Serious: Yes (Hospitalization)
  Sender: FDA-Public Use
  Company Number: 2006S1000246

PATIENT
  Sex: Male

DRUGS (4)
  1. CUBICIN [Suspect]
     Indication: ENDOCARDITIS ENTEROCOCCAL
     Dosage: 6MG/KG; Q24H; IV
     Route: 042
     Dates: start: 20061001, end: 20060101
  2. VANCOMYCIN [Concomitant]
  3. GENTAMICIN [Concomitant]
  4. CEFEPIME [Concomitant]

REACTIONS (3)
  - DIALYSIS [None]
  - NEPHRITIS INTERSTITIAL [None]
  - POST PROCEDURAL COMPLICATION [None]
